FAERS Safety Report 12802558 (Version 1)
Quarter: 2016Q4

REPORT INFORMATION
  Report Type: Spontaneous
  Country: JP (occurrence: JP)
  Receive Date: 20161003
  Receipt Date: 20161003
  Transmission Date: 20170207
  Serious: Yes (Hospitalization, Other)
  Sender: FDA-Public Use
  Company Number: JP-BAYER-2016-185035

PATIENT
  Age: 80 Year
  Sex: Male

DRUGS (18)
  1. ALDACTONE A [Suspect]
     Active Substance: SPIRONOLACTONE
     Indication: HYPERURICAEMIA
  2. ALLORIN [Concomitant]
     Indication: CARDIAC FAILURE
  3. BAYASPIRIN [Suspect]
     Active Substance: ASPIRIN
     Indication: ATRIAL FIBRILLATION
     Route: 048
  4. WARFARIN POTASSIUM [Interacting]
     Active Substance: WARFARIN POTASSIUM
     Indication: CARDIAC FAILURE
     Route: 048
  5. DIGOXIN [DIGOXIN] [Suspect]
     Active Substance: DIGOXIN
     Indication: ATRIAL FIBRILLATION
     Route: 048
  6. ALLORIN [Concomitant]
     Indication: ATRIAL FIBRILLATION
     Route: 048
  7. LASIX [Concomitant]
     Active Substance: FUROSEMIDE
     Indication: CARDIAC FAILURE
  8. DIGOXIN [DIGOXIN] [Suspect]
     Active Substance: DIGOXIN
     Indication: CARDIAC FAILURE
  9. WARFARIN POTASSIUM [Interacting]
     Active Substance: WARFARIN POTASSIUM
     Indication: ATRIAL FIBRILLATION
  10. DIGOXIN [DIGOXIN] [Suspect]
     Active Substance: DIGOXIN
     Indication: HYPERURICAEMIA
  11. ALLORIN [Concomitant]
     Indication: HYPERURICAEMIA
  12. BAYASPIRIN [Interacting]
     Active Substance: ASPIRIN
     Indication: CARDIAC FAILURE
  13. BAYASPIRIN [Interacting]
     Active Substance: ASPIRIN
     Indication: HYPERURICAEMIA
  14. LASIX [Concomitant]
     Active Substance: FUROSEMIDE
     Indication: HYPERURICAEMIA
  15. LASIX [Concomitant]
     Active Substance: FUROSEMIDE
     Indication: ATRIAL FIBRILLATION
     Route: 048
  16. WARFARIN POTASSIUM [Interacting]
     Active Substance: WARFARIN POTASSIUM
     Indication: HYPERURICAEMIA
  17. ALDACTONE A [Suspect]
     Active Substance: SPIRONOLACTONE
     Indication: ATRIAL FIBRILLATION
     Route: 048
  18. ALDACTONE A [Suspect]
     Active Substance: SPIRONOLACTONE
     Indication: CARDIAC FAILURE

REACTIONS (8)
  - Gynaecomastia [None]
  - Drug administration error [None]
  - Skin haemorrhage [Recovered/Resolved]
  - Angiokeratoma [None]
  - Autoimmune hepatitis [None]
  - Hepatic cirrhosis [None]
  - Cardiac failure [None]
  - Labelled drug-drug interaction medication error [None]

NARRATIVE: CASE EVENT DATE: 2012
